FAERS Safety Report 9721200 (Version 1)
Quarter: 2013Q4

REPORT INFORMATION
  Report Type: Spontaneous
  Country: US (occurrence: US)
  Receive Date: 20131129
  Receipt Date: 20131129
  Transmission Date: 20140711
  Serious: No
  Sender: FDA-Public Use
  Company Number: US-PFIZER INC-2013340060

PATIENT
  Age: 70 Year
  Sex: Female
  Weight: 41.72 kg

DRUGS (1)
  1. VFEND [Suspect]
     Indication: ASPERGILLUS INFECTION
     Dosage: 200 MG, 2X/DAY
     Route: 048
     Dates: start: 20131122, end: 20131124

REACTIONS (2)
  - Lung disorder [Unknown]
  - Hypersensitivity [Unknown]
